FAERS Safety Report 19254419 (Version 1)
Quarter: 2021Q2

REPORT INFORMATION
  Report Type: Spontaneous
  Country: US (occurrence: US)
  Receive Date: 20210513
  Receipt Date: 20210513
  Transmission Date: 20210717
  Serious: No
  Sender: FDA-Public Use
  Company Number: US-GW PHARMA-202105USGW02320

PATIENT

DRUGS (1)
  1. EPIDIOLEX [Suspect]
     Active Substance: CANNABIDIOL
     Indication: LENNOX-GASTAUT SYNDROME
     Dosage: 520 MILLIGRAM, BID
     Route: 048
     Dates: start: 20200429

REACTIONS (5)
  - Circumstance or information capable of leading to medication error [Unknown]
  - Insurance issue [Unknown]
  - Seizure [Unknown]
  - Weight increased [Unknown]
  - Product distribution issue [Unknown]

NARRATIVE: CASE EVENT DATE: 2021
